FAERS Safety Report 17754436 (Version 1)
Quarter: 2020Q2

REPORT INFORMATION
  Report Type: Spontaneous
  Country: CN (occurrence: CN)
  Receive Date: 20200506
  Receipt Date: 20200506
  Transmission Date: 20200714
  Serious: Yes (Hospitalization, Other)
  Sender: FDA-Public Use
  Company Number: CN-PFIZER INC-2020177508

PATIENT
  Age: 60 Year
  Sex: Male
  Weight: 55 kg

DRUGS (1)
  1. MEDROL [Suspect]
     Active Substance: METHYLPREDNISOLONE
     Indication: AUTOIMMUNE ENCEPHALOPATHY
     Dosage: 60 MG, 1X/DAY
     Route: 048
     Dates: start: 20200424

REACTIONS (5)
  - Platelet count increased [Unknown]
  - Neutrophil count increased [Unknown]
  - Blood glucose increased [Unknown]
  - Eosinophil count decreased [Unknown]
  - White blood cell count increased [Unknown]

NARRATIVE: CASE EVENT DATE: 20200426
